FAERS Safety Report 4861603-3 (Version None)
Quarter: 2005Q4

REPORT INFORMATION
  Report Type: 
  Country: None (occurrence: None)
  Receive Date: 20051216
  Receipt Date: 20051121
  Transmission Date: 20060501
  Serious: Yes (Other)
  Sender: FDA-Public Use
  Company Number: AR200511002088

PATIENT
  Sex: Female

DRUGS (2)
  1. ALIMTA [Suspect]
     Indication: PLEURAL MESOTHELIOMA
     Dosage: 500 MG/M2, 3/W
     Dates: start: 20040907, end: 20051031
  2. CISPLATIN [Concomitant]

REACTIONS (1)
  - CARDIAC FAILURE [None]
